FAERS Safety Report 8502942-4 (Version None)
Quarter: 2012Q3

REPORT INFORMATION
  Report Type: 
  Country: None (occurrence: None)
  Receive Date: 20120705
  Receipt Date: 20120705
  Transmission Date: 20120928
  Serious: Yes (Hospitalization, Disabling, Other)
  Sender: FDA-Public Use
  Company Number: None

PATIENT
  Age: 47 Year
  Sex: Female
  Weight: 52.1637 kg

DRUGS (2)
  1. CYMBALTA [Suspect]
     Indication: THERAPY CESSATION
     Dosage: 30 MG DAY PO
     Route: 048
     Dates: start: 20120524, end: 20120527
  2. CYMBALTA [Suspect]
     Indication: PAIN
     Dosage: 60 MG DAY PO
     Route: 048
     Dates: start: 20090202, end: 20120523

REACTIONS (43)
  - MUSCLE SPASMS [None]
  - HEADACHE [None]
  - EAR PAIN [None]
  - TINNITUS [None]
  - MYALGIA [None]
  - DISTURBANCE IN ATTENTION [None]
  - ORGASM ABNORMAL [None]
  - CONTUSION [None]
  - AMNESIA [None]
  - ABASIA [None]
  - SLUGGISHNESS [None]
  - THROMBOSIS [None]
  - PALPITATIONS [None]
  - COLD SWEAT [None]
  - URINARY RETENTION [None]
  - NOCTURIA [None]
  - HAEMATOMA [None]
  - SLEEP DISORDER [None]
  - HYPERHIDROSIS [None]
  - DIARRHOEA [None]
  - PAIN [None]
  - ABDOMINAL PAIN UPPER [None]
  - SYNCOPE [None]
  - ASTHENIA [None]
  - FLATULENCE [None]
  - THIRST [None]
  - WHITE BLOOD CELL COUNT INCREASED [None]
  - RASH [None]
  - PRURITUS [None]
  - APHASIA [None]
  - DIZZINESS [None]
  - DYSPEPSIA [None]
  - MICTURITION URGENCY [None]
  - ANAEMIA [None]
  - RESTLESSNESS [None]
  - MUSCLE TWITCHING [None]
  - INFREQUENT BOWEL MOVEMENTS [None]
  - DYSPNOEA [None]
  - IMPAIRED WORK ABILITY [None]
  - SOMNOLENCE [None]
  - EPISTAXIS [None]
  - DRY MOUTH [None]
  - FATIGUE [None]
